FAERS Safety Report 5846939-1 (Version None)
Quarter: 2008Q3

REPORT INFORMATION
  Report Type: 
  Country: None (occurrence: None)
  Receive Date: 20080815
  Receipt Date: 20080805
  Transmission Date: 20090109
  Serious: Yes (Life-Threatening, Hospitalization)
  Sender: FDA-Public Use
  Company Number: GB-ELI_LILLY_AND_COMPANY-GB200610001988

PATIENT
  Age: 70 Year
  Sex: Female

DRUGS (8)
  1. CYMBALTA [Suspect]
     Indication: DEPRESSION
     Dosage: 60 MG, UNKNOWN
     Route: 048
     Dates: start: 20060401, end: 20060801
  2. OLANZAPINE [Concomitant]
     Indication: AFFECTIVE DISORDER
     Dosage: 2.5 MG, DAILY (1/D)
     Route: 048
     Dates: start: 20060401
  3. ACETYLSALICYLIC ACID SRT [Concomitant]
     Dosage: 75 MG, DAILY (1/D)
     Route: 048
  4. BENDROFLUAZIDE [Concomitant]
     Dosage: 2.5 MG, UNKNOWN
     Route: 048
  5. CARBAMAZEPINE [Concomitant]
     Indication: AFFECTIVE DISORDER
     Dosage: 200 MG, 2/D
     Route: 048
     Dates: start: 20060401
  6. VALSARTAN [Concomitant]
     Dosage: 160 MG, DAILY (1/D)
     Route: 048
  7. FLUTICASONE PROPIONATE [Concomitant]
     Dosage: UNK, UNK
     Route: 055
  8. ALBUTEROL [Concomitant]
     Dosage: UNK, UNK
     Route: 055

REACTIONS (2)
  - GASTRIC HAEMORRHAGE [None]
  - GASTRIC ULCER PERFORATION [None]
